FAERS Safety Report 18256167 (Version 1)
Quarter: 2020Q3

REPORT INFORMATION
  Report Type: Spontaneous
  Country: US (occurrence: US)
  Receive Date: 20200911
  Receipt Date: 20200911
  Transmission Date: 20201103
  Serious: Yes (Hospitalization, Other)
  Sender: FDA-Public Use
  Company Number: US-009507513-2002USA004023

PATIENT
  Sex: Male
  Weight: 82.5 kg

DRUGS (3)
  1. STERILE DILUENT (WATER) [Suspect]
     Active Substance: WATER
     Dosage: UNK
     Route: 058
     Dates: start: 20160317
  2. ZOSTAVAX [Suspect]
     Active Substance: VARICELLA-ZOSTER VIRUS STRAIN OKA/MERCK LIVE ANTIGEN
     Indication: PROPHYLAXIS
     Dosage: 1 DOSAGE FORM
     Route: 058
     Dates: start: 20160317
  3. BACITRACIN (+) NEOMYCIN SULFATE (+) POLYMYXIN B SULFATE [Suspect]
     Active Substance: BACITRACIN\NEOMYCIN SULFATE\POLYMYXIN B SULFATE
     Indication: INFECTION
     Dosage: UNK
     Dates: start: 201610, end: 201610

REACTIONS (24)
  - Parainfluenzae virus infection [Unknown]
  - Lower respiratory tract infection [Unknown]
  - Arthralgia [Unknown]
  - Myocardial ischaemia [Unknown]
  - Conjunctivitis [Unknown]
  - Tinnitus [Unknown]
  - Troponin increased [Unknown]
  - Emphysema [Unknown]
  - Acute coronary syndrome [Unknown]
  - Lung consolidation [Recovered/Resolved]
  - Peripheral swelling [Unknown]
  - Procalcitonin abnormal [Unknown]
  - Bronchitis viral [Unknown]
  - Conjunctivitis bacterial [Unknown]
  - Myocardial ischaemia [Unknown]
  - Benign prostatic hyperplasia [Unknown]
  - Chronic obstructive pulmonary disease [Unknown]
  - Type V hyperlipidaemia [Unknown]
  - Pneumonia staphylococcal [Recovered/Resolved]
  - Blindness [Unknown]
  - Dizziness [Recovered/Resolved]
  - Transient ischaemic attack [Recovered/Resolved]
  - Ear pain [Recovered/Resolved]
  - Deafness neurosensory [Unknown]

NARRATIVE: CASE EVENT DATE: 201603
